FAERS Safety Report 22170870 (Version 1)
Quarter: 2023Q2

REPORT INFORMATION
  Report Type: Spontaneous
  Country: CN (occurrence: CN)
  Receive Date: 20230404
  Receipt Date: 20230404
  Transmission Date: 20230722
  Serious: Yes (Hospitalization, Other)
  Sender: FDA-Public Use
  Company Number: CN-GLAXOSMITHKLINE-CN2023APC046928

PATIENT

DRUGS (3)
  1. UMECLIDINIUM BROMIDE\VILANTEROL TRIFENATATE [Suspect]
     Active Substance: UMECLIDINIUM BROMIDE\VILANTEROL TRIFENATATE
     Indication: Chronic obstructive pulmonary disease
     Dosage: 1 PUFF(S), QD
     Route: 055
     Dates: start: 2021
  2. MORICIZINE HYDROCHLORIDE [Suspect]
     Active Substance: MORICIZINE HYDROCHLORIDE
     Indication: Ventricular extrasystoles
     Dosage: UNK, TID
  3. TIOTROPIUM BROMIDE [Concomitant]
     Active Substance: TIOTROPIUM BROMIDE
     Indication: Chronic obstructive pulmonary disease
     Dosage: UNK

REACTIONS (11)
  - Atrial fibrillation [Unknown]
  - Cardiac failure [Unknown]
  - Ventricular extrasystoles [Recovered/Resolved]
  - Supraventricular extrasystoles [Not Recovered/Not Resolved]
  - Cough [Recovered/Resolved]
  - Stress urinary incontinence [Recovered/Resolved]
  - Dry mouth [Unknown]
  - Dry throat [Unknown]
  - Oropharyngeal discomfort [Unknown]
  - Wrong technique in device usage process [Unknown]
  - Underdose [Unknown]

NARRATIVE: CASE EVENT DATE: 20220101
